FAERS Safety Report 6682028-4 (Version None)
Quarter: 2010Q2

REPORT INFORMATION
  Report Type: 
  Country: None (occurrence: None)
  Receive Date: 20100414
  Receipt Date: 20100414
  Transmission Date: 20101027
  Serious: Yes (Life-Threatening, Hospitalization)
  Sender: FDA-Public Use
  Company Number: None

PATIENT
  Weight: 97.5234 kg

DRUGS (1)
  1. LISINOPRIL [Suspect]
     Dosage: 10MG DAILY
     Dates: start: 20060101, end: 20100101

REACTIONS (5)
  - ANGIOEDEMA [None]
  - COMA [None]
  - HEAD INJURY [None]
  - RESPIRATORY DISORDER [None]
  - SYNCOPE [None]
